FAERS Safety Report 5707867-5 (Version None)
Quarter: 2008Q2

REPORT INFORMATION
  Report Type: 
  Country: None (occurrence: None)
  Receive Date: 20080414
  Receipt Date: 20080402
  Transmission Date: 20081010
  Serious: Yes (Hospitalization)
  Sender: FDA-Public Use
  Company Number: 107#08#2008-02011

PATIENT
  Sex: Male

DRUGS (1)
  1. ALPRAZOLAM [Suspect]
     Indication: DRUG EXPOSURE DURING PREGNANCY
     Dosage: 1.5 MG TRANSPLACENTAL
     Route: 064

REACTIONS (12)
  - CAESAREAN SECTION [None]
  - DRUG EXPOSURE DURING PREGNANCY [None]
  - DRUG WITHDRAWAL SYNDROME [None]
  - HYPERTONIA NEONATAL [None]
  - IRRITABILITY [None]
  - NEONATAL DISORDER [None]
  - NEONATAL INFECTION [None]
  - NEONATAL RESPIRATORY DISTRESS SYNDROME [None]
  - PREMATURE RUPTURE OF MEMBRANES [None]
  - RESPIRATORY DISTRESS [None]
  - SEPSIS [None]
  - STREPTOCOCCAL INFECTION [None]
